FAERS Safety Report 6193639-7 (Version None)
Quarter: 2009Q2

REPORT INFORMATION
  Report Type: 
  Country: None (occurrence: None)
  Receive Date: 20090514
  Receipt Date: 20090430
  Transmission Date: 20091009
  Serious: Yes (Death, Other)
  Sender: FDA-Public Use
  Company Number: 2009001303

PATIENT

DRUGS (1)
  1. ERLOTINIB (ERLOTINIB) (TABLET) (ERLOTINIB) [Suspect]
     Indication: GLIOMA
     Dosage: (MG/M2),ORAL
     Route: 048

REACTIONS (3)
  - HYDROCEPHALUS [None]
  - PROCEDURAL COMPLICATION [None]
  - TUMOUR HAEMORRHAGE [None]
